FAERS Safety Report 5084870-2 (Version None)
Quarter: 2006Q3

REPORT INFORMATION
  Report Type: 
  Country: None (occurrence: None)
  Receive Date: 20060815
  Receipt Date: 20060801
  Transmission Date: 20061208
  Serious: Yes (Other)
  Sender: FDA-Public Use
  Company Number: 8018278

PATIENT
  Age: 68 Year
  Sex: Female

DRUGS (7)
  1. PREDNISOLONE [Suspect]
     Dosage: 3 MG 1/D
     Dates: start: 19960101
  2. ENBREL [Suspect]
     Indication: RHEUMATOID ARTHRITIS
     Dosage: 25 MG 2/W
     Dates: start: 20040712, end: 20041101
  3. REMICADE [Suspect]
     Indication: RHEUMATOID ARTHRITIS
     Dosage: 3 MG/KG 1/W
     Dates: start: 20020513
  4. ALENDRONATE SODIUM [Concomitant]
  5. DIHYDROCODEINE BIARTRATE [Concomitant]
  6. LISINOPRIL [Concomitant]
  7. ZOPICLONE [Concomitant]

REACTIONS (3)
  - BASAL CELL CARCINOMA [None]
  - ECZEMA [None]
  - RASH PRURITIC [None]
